FAERS Safety Report 11190590 (Version 4)
Quarter: 2015Q2

REPORT INFORMATION
  Report Type: Spontaneous
  Country: US (occurrence: US)
  Receive Date: 20150615
  Receipt Date: 20150626
  Transmission Date: 20150821
  Serious: Yes (Other)
  Sender: FDA-Public Use
  Company Number: US-GLAXOSMITHKLINE-US2015GSK069505

PATIENT
  Sex: Female

DRUGS (4)
  1. TYVASO [Suspect]
     Active Substance: TREPROSTINIL
     Indication: PRODUCT USED FOR UNKNOWN INDICATION
     Dosage: UNK, U
     Route: 065
  2. FLOLAN [Suspect]
     Active Substance: EPOPROSTENOL SODIUM
     Dosage: 8 NG/KG/MIN CONTINUOUSLY, CONCENTRATION AND PUMP RATE: NOT REPORTED; VIAL STRENGTH: 1.5 MG
     Route: 042
     Dates: start: 20150508
  3. FLOLAN [Suspect]
     Active Substance: EPOPROSTENOL SODIUM
     Dosage: 10 NG/KG/MIN CONCENTRATION 15,000 NG/ML PUMP RATE 67 ML/DAY VIAL STRENGTH 1.5 MG/1ML
  4. FLOLAN [Suspect]
     Active Substance: EPOPROSTENOL SODIUM
     Indication: PULMONARY HYPERTENSION
     Dosage: 8 NG/KG/MIN CONTINUOUSLY, CONCENTRATION: 15,000 NG/ML; PUMP RATE: 54 ML/DAY; VIAL STRENGTH: 1.5 MG
     Route: 042
     Dates: start: 20150508

REACTIONS (7)
  - Fatigue [Unknown]
  - Nausea [Unknown]
  - Pain in jaw [Unknown]
  - Headache [Unknown]
  - Drug ineffective [Unknown]
  - Hypoxia [Unknown]
  - Cough [Unknown]
